FAERS Safety Report 7151026-9 (Version None)
Quarter: 2010Q4

REPORT INFORMATION
  Report Type: 
  Country: None (occurrence: None)
  Receive Date: 20101210
  Receipt Date: 20101202
  Transmission Date: 20110411
  Serious: Yes (Hospitalization)
  Sender: FDA-Public Use
  Company Number: B0685352A

PATIENT
  Sex: Female
  Weight: 52 kg

DRUGS (4)
  1. ARIXTRA [Suspect]
     Indication: THROMBOSIS PROPHYLAXIS
     Dosage: 2.5MG PER DAY
     Route: 058
     Dates: start: 20100929, end: 20101004
  2. OLMETEC [Concomitant]
     Indication: HYPERTENSION
     Dosage: 20MG PER DAY
     Route: 048
     Dates: start: 20100427
  3. RIMATIL [Concomitant]
     Indication: RHEUMATOID ARTHRITIS
     Dosage: 200MG PER DAY
     Route: 048
     Dates: start: 20100927
  4. CEFAZOLIN SODIUM [Concomitant]
     Indication: INFECTION PROPHYLAXIS
     Dosage: 2IUAX PER DAY
     Route: 042
     Dates: start: 20100928, end: 20100930

REACTIONS (5)
  - HAEMATOCRIT DECREASED [None]
  - HAEMOGLOBIN DECREASED [None]
  - PELVIC HAEMATOMA [None]
  - PLATELET COUNT INCREASED [None]
  - RED BLOOD CELL COUNT DECREASED [None]
